FAERS Safety Report 9550449 (Version 2)
Quarter: 2020Q2

REPORT INFORMATION
  Report Type: Report from Study
  Country: US (occurrence: US)
  Receive Date: 20130924
  Receipt Date: 20200424
  Transmission Date: 20200714
  Serious: No
  Sender: FDA-Public Use
  Company Number: US-SANOFI-AVENTIS-2013SA078417

PATIENT
  Age: 64 Year
  Sex: Female

DRUGS (3)
  1. TERIFLUNOMIDE. [Suspect]
     Active Substance: TERIFLUNOMIDE
     Indication: MULTIPLE SCLEROSIS
     Dosage: 14 MG,QD
     Route: 048
     Dates: start: 20130701, end: 20141225
  2. TERIFLUNOMIDE. [Suspect]
     Active Substance: TERIFLUNOMIDE
     Dosage: 7 MG, QD
     Route: 048
     Dates: start: 20150410, end: 20200315
  3. COPAXONE [Concomitant]
     Active Substance: GLATIRAMER ACETATE
     Indication: MULTIPLE SCLEROSIS
     Dosage: UNK
     Dates: start: 20010701, end: 20130628

REACTIONS (7)
  - Pain in extremity [Unknown]
  - Paraesthesia [Unknown]
  - Burning sensation [Unknown]
  - Hypoaesthesia [Not Recovered/Not Resolved]
  - Diarrhoea [Unknown]
  - Insomnia [Unknown]
  - Paraesthesia [Not Recovered/Not Resolved]

NARRATIVE: CASE EVENT DATE: 201307
